FAERS Safety Report 4930669-4 (Version None)
Quarter: 2006Q1

REPORT INFORMATION
  Report Type: 
  Country: None (occurrence: None)
  Receive Date: 20060227
  Receipt Date: 20060221
  Transmission Date: 20060701
  Serious: Yes (Hospitalization)
  Sender: FDA-Public Use
  Company Number: MK200602-0034-2

PATIENT
  Age: 11 Year
  Sex: Male

DRUGS (1)
  1. MD-GASTROVIEW INDONATED CONTRAST MEDIA [Suspect]
     Indication: COMPUTERISED TOMOGRAM
     Dosage: ONCE
     Dates: start: 20051204, end: 20051204

REACTIONS (15)
  - ABDOMINAL PAIN [None]
  - COLD SWEAT [None]
  - COMPLEX REGIONAL PAIN SYNDROME [None]
  - CONVULSION [None]
  - DIZZINESS [None]
  - EYE ROLLING [None]
  - HAEMATURIA [None]
  - HYPERVENTILATION [None]
  - LETHARGY [None]
  - MENTAL STATUS CHANGES [None]
  - MOTION SICKNESS [None]
  - NASOPHARYNGITIS [None]
  - PALLOR [None]
  - URINARY INCONTINENCE [None]
  - VOMITING [None]
